FAERS Safety Report 9679202 (Version 1)
Quarter: 2013Q4

REPORT INFORMATION
  Report Type: Spontaneous
  Country: GB (occurrence: None)
  Receive Date: 20131107
  Receipt Date: 20131107
  Transmission Date: 20140711
  Serious: Yes (Other)
  Sender: FDA-Public Use
  Company Number: AUR-APL-2013-09196

PATIENT
  Age: 78 Year
  Sex: Male

DRUGS (10)
  1. CIPROFLOXACIN (CIPROFLOXACIN) [Suspect]
     Indication: WOUND INFECTION PSEUDOMONAS
     Dosage: 1000 MG (500 MG, 2 IN 1 D)
  2. ASPIRIN (ACETYLSALICYLIC ACID) [Concomitant]
  3. BISOPROLOL (BISOPROLOL) [Concomitant]
  4. CO-AMOXICLAV (SPEKTRAMOX) [Concomitant]
  5. DIAZEPAM (DIAZEPAM) [Concomitant]
  6. DIGOXIN (DIGOXIN) [Concomitant]
  7. FLUOXETINE (FLUOXETINE) [Concomitant]
  8. ORAMORPH (MORPHINE SULFATE PENTAHYDRATE) [Concomitant]
  9. PREDNISOLONE (PREDNISOLONE) [Concomitant]
  10. SIMVASTATIN (SIMVASTATIN) [Concomitant]

REACTIONS (4)
  - Abnormal dreams [None]
  - Aggression [None]
  - Delusion [None]
  - Dyskinesia [None]
